FAERS Safety Report 8800288 (Version 2)
Quarter: 2012Q4

REPORT INFORMATION
  Report Type: 
  Country: US (occurrence: US)
  Receive Date: 20120921
  Receipt Date: 20121221
  Transmission Date: 20130627
  Serious: Yes (Hospitalization)
  Sender: FDA-Public Use
  Company Number: US-BIOGENIDEC-2012BI037970

PATIENT
  Age: 63 Year
  Sex: Female

DRUGS (1)
  1. AVONEX [Suspect]
     Indication: MULTIPLE SCLEROSIS
     Route: 030
     Dates: start: 20070709

REACTIONS (4)
  - Trigeminal neuralgia [Recovered/Resolved]
  - Exostosis [Recovered/Resolved]
  - Bursa disorder [Recovered/Resolved]
  - Ligament injury [Recovered/Resolved]
